FAERS Safety Report 8516322-9 (Version None)
Quarter: 2012Q3

REPORT INFORMATION
  Report Type: 
  Country: None (occurrence: None)
  Receive Date: 20120718
  Receipt Date: 20120706
  Transmission Date: 20120928
  Serious: Yes (Hospitalization)
  Sender: FDA-Public Use
  Company Number: DE-BRISTOL-MYERS SQUIBB COMPANY-15511553

PATIENT
  Age: 80 Year
  Sex: Female
  Weight: 53 kg

DRUGS (11)
  1. DEXTROMETHORPHAN [Concomitant]
     Indication: PREMEDICATION
     Dates: start: 20100802, end: 20100809
  2. FOLINATE [Concomitant]
     Indication: COLORECTAL CANCER METASTATIC
     Dosage: CA-FOLINAT/NA-FOLINAT/FOLINSAEURE.
     Dates: start: 20100802, end: 20111109
  3. CORTICOSTEROID [Concomitant]
     Indication: PREMEDICATION
     Dosage: 2AUG-9AUG10-IV-16MG
     Route: 048
     Dates: start: 20100802, end: 20100809
  4. GRANISETRON [Concomitant]
     Indication: PREMEDICATION
     Dosage: GRANISETRON HEXAL
     Dates: start: 20100802, end: 20100809
  5. ERBITUX [Suspect]
     Indication: COLORECTAL CANCER METASTATIC
     Dosage: INTERR 9AUG10, REINTRODUCED 6DEC10 IV INF.(390MG)250MG/M2-1IN1WK-9AUG10-9NOV10
     Route: 042
     Dates: start: 20100802, end: 20101109
  6. FLUOROURACIL [Concomitant]
     Indication: COLORECTAL CANCER METASTATIC
     Dosage: 1DF=400MG/M2 ON DAY1P:2-9AUG10 2400MG/M2:(1IN1WK):2-9AUG10 IV-7D IV BOLUS-464D
     Route: 040
     Dates: start: 20100802
  7. FUROSEMIDE [Concomitant]
     Indication: OEDEMA PERIPHERAL
  8. FENISTIL [Concomitant]
     Indication: PREMEDICATION
     Dates: start: 20100802, end: 20100809
  9. GRANISETRON HYDROCHLORIDE [Concomitant]
     Indication: PREMEDICATION
     Dates: start: 20100802, end: 20100809
  10. IRINOTECAN HCL [Concomitant]
     Indication: COLORECTAL CANCER METASTATIC
     Route: 042
     Dates: start: 20100802, end: 20111109
  11. RANITIDINE [Concomitant]
     Indication: PREMEDICATION
     Dosage: RANITIC INJECT AMO.
     Dates: start: 20100802, end: 20100809

REACTIONS (3)
  - HOSPITALISATION [None]
  - FEMUR FRACTURE [None]
  - GENERAL PHYSICAL HEALTH DETERIORATION [None]
